FAERS Safety Report 8747886 (Version 2)
Quarter: 2012Q4

REPORT INFORMATION
  Report Type: 
  Country: DE (occurrence: DE)
  Receive Date: 20120827
  Receipt Date: 20120911
  Transmission Date: 20130627
  Serious: Yes (Other)
  Sender: FDA-Public Use
  Company Number: DE-GLAXOSMITHKLINE-D0076828A

PATIENT
  Age: 37 Year
  Sex: Male
  Weight: 73 kg

DRUGS (5)
  1. LAMICTAL [Suspect]
     Dosage: 2100MG Single dose
     Route: 048
     Dates: start: 20120823
  2. KEPPRA [Suspect]
     Dosage: 14000MG Single dose
     Route: 048
     Dates: start: 20120823
  3. LYRICA [Suspect]
     Dosage: 1500MG Single dose
     Route: 048
     Dates: start: 20120823
  4. METHIONINE [Suspect]
     Dosage: 1500MG Single dose
     Route: 048
     Dates: start: 20120823
  5. CITALOPRAM [Suspect]
     Dosage: 100MG Single dose
     Route: 048
     Dates: start: 20120823

REACTIONS (2)
  - Suicide attempt [Unknown]
  - Intentional overdose [Unknown]
